FAERS Safety Report 13190684 (Version 3)
Quarter: 2017Q2

REPORT INFORMATION
  Report Type: Spontaneous
  Country: US (occurrence: US)
  Receive Date: 20170206
  Receipt Date: 20170511
  Transmission Date: 20170830
  Serious: No
  Sender: FDA-Public Use
  Company Number: US-ACTELION-A-US2017-149554

PATIENT
  Age: 81 Year
  Sex: Female

DRUGS (19)
  1. CARVEDILOL. [Concomitant]
     Active Substance: CARVEDILOL
  2. FUROSEMIDE. [Concomitant]
     Active Substance: FUROSEMIDE
  3. ALEVE [Concomitant]
     Active Substance: NAPROXEN SODIUM
  4. PANTOPRAZOLE [Concomitant]
     Active Substance: PANTOPRAZOLE
  5. ADEMPAS [Concomitant]
     Active Substance: RIOCIGUAT
  6. METAMUCIL [Concomitant]
     Active Substance: PLANTAGO SEED
  7. COLACE [Concomitant]
     Active Substance: DOCUSATE SODIUM
  8. COQ10 [Concomitant]
     Active Substance: UBIDECARENONE
  9. LEVOTHYROXINE. [Concomitant]
     Active Substance: LEVOTHYROXINE
  10. VENTAVIS [Suspect]
     Active Substance: ILOPROST
     Indication: PULMONARY ARTERIAL HYPERTENSION
     Dosage: 5 MCG, 6-9/DAILY
     Route: 055
     Dates: start: 20130207
  11. PROCRIT [Concomitant]
     Active Substance: ERYTHROPOIETIN
  12. SPIRONOLACTONE. [Concomitant]
     Active Substance: SPIRONOLACTONE
  13. VENTAVIS [Suspect]
     Active Substance: ILOPROST
     Dosage: 5 MCG, TID
     Route: 055
  14. OPSUMIT [Suspect]
     Active Substance: MACITENTAN
     Indication: PULMONARY ARTERIAL HYPERTENSION
     Dosage: 10 MG, QD
     Route: 048
     Dates: start: 20150529
  15. TRAMADOL. [Concomitant]
     Active Substance: TRAMADOL
  16. IRON [Concomitant]
     Active Substance: IRON
  17. ELIQUIS [Concomitant]
     Active Substance: APIXABAN
  18. VITAMIN D [Concomitant]
     Active Substance: CHOLECALCIFEROL
  19. SIMVASTATIN. [Concomitant]
     Active Substance: SIMVASTATIN

REACTIONS (6)
  - Wrist fracture [Recovering/Resolving]
  - Muscular weakness [Unknown]
  - Hand fracture [Recovering/Resolving]
  - Drug dose omission [Not Recovered/Not Resolved]
  - Neck pain [Not Recovered/Not Resolved]
  - Fatigue [Not Recovered/Not Resolved]

NARRATIVE: CASE EVENT DATE: 201701
